FAERS Safety Report 6524090-5 (Version None)
Quarter: 2009Q4

REPORT INFORMATION
  Report Type: 
  Country: None (occurrence: None)
  Receive Date: 20091231
  Receipt Date: 20091221
  Transmission Date: 20100525
  Serious: Yes (Hospitalization)
  Sender: FDA-Public Use
  Company Number: FR-CELGENEUS-056-C5013-09121750

PATIENT
  Sex: Male
  Weight: 68 kg

DRUGS (3)
  1. CC-5013 [Suspect]
     Indication: MULTIPLE MYELOMA
     Route: 048
     Dates: start: 20091014
  2. DEXAMETHASONE [Suspect]
     Indication: MULTIPLE MYELOMA
     Route: 065
     Dates: start: 20091014, end: 20091219
  3. KARDEGIC [Concomitant]
     Indication: PLATELET AGGREGATION
     Route: 048
     Dates: start: 20081014

REACTIONS (2)
  - ANAEMIA [None]
  - LUNG DISORDER [None]
